FAERS Safety Report 4278577-9 (Version None)
Quarter: 2004Q1

REPORT INFORMATION
  Report Type: 
  Country: None (occurrence: None)
  Receive Date: 20040122
  Receipt Date: 20040107
  Transmission Date: 20041129
  Serious: Yes (Other)
  Sender: FDA-Public Use
  Company Number: K200400018

PATIENT
  Age: 33 Year
  Sex: Male
  Weight: 78.9 kg

DRUGS (1)
  1. ALTACE [Suspect]
     Indication: PROTEINURIA
     Dosage: 2.5 MG, QD, ORAL
     Route: 048
     Dates: start: 20030701, end: 20030801

REACTIONS (16)
  - ASTHENIA [None]
  - BLOOD PRESSURE DIASTOLIC INCREASED [None]
  - BLOOD PRESSURE INCREASED [None]
  - BONE PAIN [None]
  - CARDIAC DISORDER [None]
  - CHEST PAIN [None]
  - DIZZINESS [None]
  - ELECTROCARDIOGRAM ABNORMAL [None]
  - EXERCISE TOLERANCE DECREASED [None]
  - FEELING ABNORMAL [None]
  - HEART RATE IRREGULAR [None]
  - MUSCULAR WEAKNESS [None]
  - PALPITATIONS [None]
  - POLLAKIURIA [None]
  - SINUS TACHYCARDIA [None]
  - WEIGHT DECREASED [None]
